FAERS Safety Report 8491819-9 (Version None)
Quarter: 2012Q3

REPORT INFORMATION
  Report Type: 
  Country: None (occurrence: None)
  Receive Date: 20120706
  Receipt Date: 20120620
  Transmission Date: 20120928
  Serious: No
  Sender: FDA-Public Use
  Company Number: US-GLAXOSMITHKLINE-A0913443A

PATIENT
  Age: 68 Year
  Sex: Female

DRUGS (6)
  1. CALAN [Concomitant]
  2. COZAAR [Concomitant]
  3. PREVACID [Concomitant]
  4. BUSPAR [Concomitant]
  5. FLOVENT [Suspect]
     Indication: ASTHMA EXERCISE INDUCED
     Dosage: 2PUFF TWICE PER DAY
     Route: 055
     Dates: start: 20090101, end: 20110214
  6. CLARITIN [Concomitant]

REACTIONS (13)
  - ORAL DISORDER [None]
  - DYSPNOEA [None]
  - DRY THROAT [None]
  - THROAT IRRITATION [None]
  - ORAL HERPES [None]
  - CANDIDIASIS [None]
  - ANXIETY [None]
  - APHONIA [None]
  - WEIGHT LOSS POOR [None]
  - TONGUE COATED [None]
  - DYSPHONIA [None]
  - OROPHARYNGEAL PAIN [None]
  - PRODUCT QUALITY ISSUE [None]
